FAERS Safety Report 6600417-0 (Version None)
Quarter: 2010Q1

REPORT INFORMATION
  Report Type: 
  Country: None (occurrence: None)
  Receive Date: 20100224
  Receipt Date: 20100217
  Transmission Date: 20100710
  Serious: Yes (Hospitalization)
  Sender: FDA-Public Use
  Company Number: US-ABBOTT-09P-163-0596930-00

PATIENT
  Sex: Male
  Weight: 97.156 kg

DRUGS (10)
  1. HUMIRA [Suspect]
     Indication: PSORIASIS
     Route: 058
     Dates: start: 20090302, end: 20090501
  2. METHOTREXATE [Concomitant]
     Indication: PSORIASIS
     Dates: start: 19950929
  3. RAPTIVA [Concomitant]
     Indication: PSORIASIS
     Dates: start: 20031101
  4. AMEVIVE [Concomitant]
     Indication: PSORIASIS
     Dates: start: 20000101
  5. HYZAAR [Concomitant]
     Indication: HYPERTENSION
     Dates: start: 20050101, end: 20090501
  6. GLUCOPHAGE [Concomitant]
     Indication: DIABETES MELLITUS
     Dates: start: 20010101
  7. ACTOS [Concomitant]
     Indication: DIABETES MELLITUS
     Dates: start: 20050101
  8. AVANDIA [Concomitant]
     Indication: DIABETES MELLITUS
     Dates: start: 20060101
  9. SIMVASTATIN [Concomitant]
     Indication: HYPERTENSION
     Dates: start: 20000101
  10. METHOTREXATE [Concomitant]
     Dates: start: 19950101, end: 20090501

REACTIONS (1)
  - PRESYNCOPE [None]
